FAERS Safety Report 10655892 (Version 1)
Quarter: 2014Q4

REPORT INFORMATION
  Report Type: Spontaneous
  Country: US (occurrence: US)
  Receive Date: 20141216
  Receipt Date: 20141216
  Transmission Date: 20150529
  Serious: Yes (Hospitalization)
  Sender: FDA-Public Use
  Company Number: US-B.I. PHARMACEUTICALS,INC./RIDGEFIELD-2014-BI-60142BP

PATIENT
  Age: 65 Year
  Sex: Female
  Weight: 76.2 kg

DRUGS (2)
  1. SPIRIVA [Suspect]
     Active Substance: TIOTROPIUM BROMIDE MONOHYDRATE
     Dosage: 18 MCG
     Route: 055
     Dates: start: 201412
  2. SPIRIVA [Suspect]
     Active Substance: TIOTROPIUM BROMIDE MONOHYDRATE
     Indication: BRONCHITIS
     Dosage: 18 MCG
     Route: 055
     Dates: start: 201312

REACTIONS (7)
  - Herpes zoster [Recovered/Resolved]
  - Chest pain [Not Recovered/Not Resolved]
  - Clostridium difficile infection [Recovered/Resolved]
  - Cough [Not Recovered/Not Resolved]
  - Infection [Recovered/Resolved]
  - Cellulitis [Recovered/Resolved]
  - Body temperature increased [Recovered/Resolved]

NARRATIVE: CASE EVENT DATE: 201407
